FAERS Safety Report 5033783-0 (Version None)
Quarter: 2006Q2

REPORT INFORMATION
  Report Type: 
  Country: None (occurrence: None)
  Receive Date: 20060623
  Receipt Date: 20060612
  Transmission Date: 20061013
  Serious: Yes (Life-Threatening, Hospitalization, Disabling, Other)
  Sender: FDA-Public Use
  Company Number: JP-NOVOPROD-254208

PATIENT
  Age: 68 Year
  Sex: Male

DRUGS (3)
  1. GLUCAGON G NOVO [Suspect]
     Indication: GASTROINTESTINAL ENDOSCOPIC THERAPY
     Dates: start: 20060602, end: 20060602
  2. GASTER D [Concomitant]
     Indication: NAUSEA
     Dosage: 40 MG, UNK
     Route: 048
     Dates: start: 20060601, end: 20060602
  3. GASMOTIN [Concomitant]
     Indication: NAUSEA
     Dosage: 15 MG, UNK
     Route: 048
     Dates: start: 20060601, end: 20060602

REACTIONS (9)
  - CARDIO-RESPIRATORY ARREST [None]
  - DISSEMINATED INTRAVASCULAR COAGULATION [None]
  - HAEMODIALYSIS [None]
  - HYPOGLYCAEMIA [None]
  - ISCHAEMIC HEPATITIS [None]
  - RENAL FAILURE [None]
  - RESPIRATORY FAILURE [None]
  - RHABDOMYOLYSIS [None]
  - SHOCK [None]
